FAERS Safety Report 5060597-8 (Version None)
Quarter: 2006Q3

REPORT INFORMATION
  Report Type: 
  Country: None (occurrence: None)
  Receive Date: 20060725
  Receipt Date: 20060721
  Transmission Date: 20061208
  Serious: Yes (Death)
  Sender: FDA-Public Use
  Company Number: PHFR2006GB02307

PATIENT
  Age: 45 Year
  Sex: Female

DRUGS (7)
  1. TEGRETOL [Suspect]
     Indication: EPILEPSY
     Dosage: 600 MG/DAY
     Route: 065
     Dates: start: 19920101
  2. ABILIFY [Suspect]
     Indication: PSYCHOTIC DISORDER
     Dosage: 30 MG/DAY
     Route: 065
     Dates: start: 20050201
  3. CITALOPRAM HYDROBROMIDE [Suspect]
     Indication: DEPRESSION
     Dosage: 20 MG/DAY
     Route: 065
     Dates: start: 20031001
  4. KEMADRIN [Suspect]
     Dosage: 10 MG/DAY
     Route: 065
     Dates: start: 20031001
  5. KEPPRA [Suspect]
     Indication: EPILEPSY
     Dosage: 2000 MG/DAY
     Route: 065
     Dates: start: 20030501
  6. FEMODENE [Concomitant]
     Indication: CONTRACEPTION
     Route: 065
     Dates: end: 20060401
  7. SOLIAN [Concomitant]
     Route: 065
     Dates: end: 20060101

REACTIONS (2)
  - DEATH [None]
  - WEIGHT INCREASED [None]
